FAERS Safety Report 24278989 (Version 1)
Quarter: 2024Q3

REPORT INFORMATION
  Report Type: Spontaneous
  Country: FR (occurrence: FR)
  Receive Date: 20240903
  Receipt Date: 20240903
  Transmission Date: 20241017
  Serious: Yes (Hospitalization)
  Sender: PFIZER
  Company Number: None

PATIENT
  Age: 72 Year
  Sex: Male
  Weight: 81.1 kg

DRUGS (4)
  1. BRAFTOVI [Suspect]
     Active Substance: ENCORAFENIB
     Indication: Metastatic malignant melanoma
     Dosage: 450 MG DAILY
     Route: 048
     Dates: start: 20240731
  2. MEKTOVI [Suspect]
     Active Substance: BINIMETINIB
     Indication: Metastatic malignant melanoma
     Dosage: 90 MG DAILY
     Route: 048
     Dates: start: 20240731
  3. ZOPICLONE [Suspect]
     Active Substance: ZOPICLONE
     Dosage: 7.5 MG DAILY
     Route: 048
     Dates: start: 20240813
  4. ATOVAQUONE [Suspect]
     Active Substance: ATOVAQUONE
     Dosage: 750 MG DAILY
     Route: 048
     Dates: start: 20240809

REACTIONS (2)
  - Rash maculo-papular [Not Recovered/Not Resolved]
  - Oral mucosa erosion [Not Recovered/Not Resolved]

NARRATIVE: CASE EVENT DATE: 20240817
